FAERS Safety Report 25870997 (Version 1)
Quarter: 2025Q4

REPORT INFORMATION
  Report Type: Spontaneous
  Country: US (occurrence: US)
  Receive Date: 20251001
  Receipt Date: 20251001
  Transmission Date: 20260117
  Serious: No
  Sender: ABBVIE
  Company Number: US-ABBVIE-6484053

PATIENT
  Sex: Female

DRUGS (1)
  1. SYNTHROID [Suspect]
     Active Substance: LEVOTHYROXINE SODIUM
     Indication: Product used for unknown indication
     Route: 048

REACTIONS (7)
  - Temperature regulation disorder [Unknown]
  - Gastrointestinal injury [Unknown]
  - Weight abnormal [Unknown]
  - Sleep disorder [Unknown]
  - Alopecia [Unknown]
  - Cardiac disorder [Unknown]
  - Blood cholesterol abnormal [Unknown]
